FAERS Safety Report 23250233 (Version 1)
Quarter: 2023Q4

REPORT INFORMATION
  Report Type: Spontaneous
  Country: NI (occurrence: None)
  Receive Date: 20231201
  Receipt Date: 20231201
  Transmission Date: 20240109
  Serious: Yes (Other)
  Sender: FDA-Public Use
  Company Number: NI-ROCHE-3462228

PATIENT
  Age: 54 Year
  Sex: Female

DRUGS (9)
  1. GAZYVA [Suspect]
     Active Substance: OBINUTUZUMAB
     Indication: Non-Hodgkin^s lymphoma
     Dosage: 100MG AND 900MG IN THE FOLLOWING DAY, FREQUENCY WAS NOT REPORTED
     Route: 042
  2. GAZYVA [Suspect]
     Active Substance: OBINUTUZUMAB
     Indication: Diffuse large B-cell lymphoma
  3. HYDROCORTISONE [Concomitant]
     Active Substance: HYDROCORTISONE
  4. ACETAMINOPHEN [Concomitant]
     Active Substance: ACETAMINOPHEN
  5. DIPHENHYDRAMINE [Concomitant]
     Active Substance: DIPHENHYDRAMINE
  6. ONDANSETRON [Concomitant]
     Active Substance: ONDANSETRON
  7. CYCLOPHOSPHAMIDE [Concomitant]
     Active Substance: CYCLOPHOSPHAMIDE
  8. PREDNISONE [Concomitant]
     Active Substance: PREDNISONE
  9. FILGRASTIM [Concomitant]
     Active Substance: FILGRASTIM

REACTIONS (4)
  - Face oedema [Unknown]
  - Dermatitis allergic [Unknown]
  - Localised oedema [Unknown]
  - Erythema [Unknown]

NARRATIVE: CASE EVENT DATE: 20231115
